FAERS Safety Report 11742384 (Version 1)
Quarter: 2015Q4

REPORT INFORMATION
  Report Type: Report from Study
  Country: US (occurrence: US)
  Receive Date: 20151116
  Receipt Date: 20151116
  Transmission Date: 20160304
  Serious: Yes (Other)
  Sender: FDA-Public Use
  Company Number: US-ROCHE-1654951

PATIENT

DRUGS (4)
  1. RITUXIMAB [Suspect]
     Active Substance: RITUXIMAB
     Route: 042
  2. FLUDARABINE [Suspect]
     Active Substance: FLUDARABINE PHOSPHATE
     Indication: CHRONIC LYMPHOCYTIC LEUKAEMIA
     Route: 042
  3. RITUXIMAB [Suspect]
     Active Substance: RITUXIMAB
     Indication: CHRONIC LYMPHOCYTIC LEUKAEMIA
     Dosage: 28-DAY CYCLES
     Route: 042
  4. CYCLOPHOSPHAMIDE. [Suspect]
     Active Substance: CYCLOPHOSPHAMIDE
     Indication: CHRONIC LYMPHOCYTIC LEUKAEMIA
     Route: 042

REACTIONS (12)
  - Adenocarcinoma gastric [Unknown]
  - Oropharyngeal squamous cell carcinoma [Unknown]
  - Anaplastic large cell lymphoma T- and null-cell types [Unknown]
  - Infection [Unknown]
  - Interstitial lung disease [Unknown]
  - Thrombocytopenia [Unknown]
  - Lung adenocarcinoma [Unknown]
  - Penile squamous cell carcinoma [Unknown]
  - Neutropenia [Unknown]
  - Neuroendocrine carcinoma of the skin [Unknown]
  - Cytopenia [Unknown]
  - Metastatic gastric cancer [Unknown]
